FAERS Safety Report 6913060-0 (Version None)
Quarter: 2010Q3

REPORT INFORMATION
  Report Type: 
  Country: None (occurrence: None)
  Receive Date: 20100806
  Receipt Date: 20090701
  Transmission Date: 20110219
  Serious: No
  Sender: FDA-Public Use
  Company Number: US-PFIZER INC-2009235448

PATIENT
  Sex: Female
  Weight: 59 kg

DRUGS (2)
  1. DETROL LA [Suspect]
     Indication: HYPERTONIC BLADDER
     Dosage: UNK
     Dates: start: 20090502, end: 20090101
  2. NUVARING [Concomitant]
     Dosage: UNK

REACTIONS (1)
  - VISION BLURRED [None]
